FAERS Safety Report 6128860-7 (Version None)
Quarter: 2009Q1

REPORT INFORMATION
  Report Type: 
  Country: None (occurrence: None)
  Receive Date: 20090320
  Receipt Date: 20090309
  Transmission Date: 20090719
  Serious: Yes (Death, Other)
  Sender: FDA-Public Use
  Company Number: MPS1-10494

PATIENT
  Age: 4 Year
  Sex: Female
  Weight: 15.1 kg

DRUGS (8)
  1. ALDURAZYME [Suspect]
     Indication: MUCOPOLYSACCHARIDOSIS I
     Dosage: 0.58 MG/KG, QW, INTRAVENOUS
     Route: 042
     Dates: start: 20030818
  2. BACTRIM [Concomitant]
  3. PULMICORT [Concomitant]
  4. ZYRTEC [Concomitant]
  5. FLONASE [Concomitant]
  6. ALBUTEROL [Concomitant]
  7. BENADRYL [Concomitant]
  8. MOTRIN [Concomitant]

REACTIONS (12)
  - BRAIN STEM GLIOMA [None]
  - CELL DEATH [None]
  - DEAFNESS [None]
  - DRUG HYPERSENSITIVITY [None]
  - HEAD INJURY [None]
  - NO THERAPEUTIC RESPONSE [None]
  - PNEUMONIA [None]
  - PYREXIA [None]
  - TOOTH EXTRACTION [None]
  - UMBILICAL HERNIA REPAIR [None]
  - URINE ANALYSIS ABNORMAL [None]
  - WEIGHT GAIN POOR [None]
